FAERS Safety Report 7378609-5 (Version None)
Quarter: 2011Q1

REPORT INFORMATION
  Report Type: 
  Country: None (occurrence: None)
  Receive Date: 20110328
  Receipt Date: 20110311
  Transmission Date: 20110831
  Serious: Yes (Death)
  Sender: FDA-Public Use
  Company Number: US-ROCHE-766503

PATIENT
  Sex: Female

DRUGS (3)
  1. GDC-0449 [Suspect]
     Indication: MEDULLOBLASTOMA
     Dosage: 150 MG, QD
     Route: 048
     Dates: start: 20100209, end: 20100330
  2. GDC-0449 [Suspect]
     Dosage: 150 MG, QD
     Route: 048
     Dates: start: 20100209, end: 20100330
  3. BEVACIZUMAB [Suspect]
     Indication: MEDULLOBLASTOMA
     Route: 065

REACTIONS (1)
  - DEATH [None]
